FAERS Safety Report 12454196 (Version 1)
Quarter: 2016Q2

REPORT INFORMATION
  Report Type: Report from Study
  Country: US (occurrence: US)
  Receive Date: 20160610
  Receipt Date: 20160610
  Transmission Date: 20160815
  Serious: Yes (Hospitalization)
  Sender: FDA-Public Use
  Company Number: US-BRISTOL-MYERS SQUIBB COMPANY-BMS-2016-044467

PATIENT
  Sex: Female

DRUGS (1)
  1. ABATACEPT [Suspect]
     Active Substance: ABATACEPT
     Indication: RHEUMATOID ARTHRITIS
     Route: 058

REACTIONS (7)
  - Swelling [Unknown]
  - Headache [Unknown]
  - Insomnia [Unknown]
  - Palpitations [Unknown]
  - Malaise [Unknown]
  - Drug ineffective [Unknown]
  - Drug administration error [Unknown]
